FAERS Safety Report 5121553-4 (Version None)
Quarter: 2006Q4

REPORT INFORMATION
  Report Type: 
  Country: None (occurrence: None)
  Receive Date: 20061006
  Receipt Date: 20060922
  Transmission Date: 20070319
  Serious: Yes (Hospitalization)
  Sender: FDA-Public Use
  Company Number: PHFR2006GB02875

PATIENT
  Age: 69 Year
  Sex: Male

DRUGS (10)
  1. GLEEVEC [Suspect]
     Indication: CHRONIC MYELOID LEUKAEMIA
     Dosage: 400 MG, QD
     Route: 048
     Dates: start: 20060602
  2. GLEEVEC [Suspect]
     Dosage: 600 MG, QD
     Route: 048
     Dates: start: 20060607
  3. ACYCLOVIR [Concomitant]
     Indication: RASH
     Dates: start: 20060718
  4. ALLOPURINOL [Concomitant]
     Dosage: 300 MG/DAY
  5. CALCICHEW [Concomitant]
     Dosage: 500 MG, TID
  6. CO-AMILOFRUSE [Concomitant]
  7. DIGOXIN [Concomitant]
     Dosage: 125 UG, QD
  8. OMEPRAZOLE [Concomitant]
     Dosage: 20 MG, QD
  9. SANDO K [Concomitant]
     Dosage: 1 DF, BID
  10. WARFARIN SODIUM [Concomitant]
     Dosage: 4 MG, QD

REACTIONS (4)
  - HYPOCALCAEMIA [None]
  - HYPOKALAEMIA [None]
  - HYPOMAGNESAEMIA [None]
  - HYPOPHOSPHATAEMIA [None]
